FAERS Safety Report 16121944 (Version 3)
Quarter: 2019Q3

REPORT INFORMATION
  Report Type: Spontaneous
  Country: IL (occurrence: IL)
  Receive Date: 20190327
  Receipt Date: 20190712
  Transmission Date: 20191004
  Serious: Yes (Other)
  Sender: FDA-Public Use
  Company Number: IL-ACTELION-A-CH2017-157924

PATIENT
  Age: 67 Year
  Sex: Female
  Weight: 39 kg

DRUGS (16)
  1. OPSUMIT [Suspect]
     Active Substance: MACITENTAN
     Indication: PULMONARY ARTERIAL HYPERTENSION
     Dosage: 10 MG, QD
     Route: 048
     Dates: start: 20150918
  2. LOSEC [Concomitant]
     Active Substance: OMEPRAZOLE
  3. UPTRAVI [Suspect]
     Active Substance: SELEXIPAG
     Indication: PULMONARY ARTERIAL HYPERTENSION
     Dosage: 400 ?G, BID
     Route: 048
     Dates: start: 20170802
  4. UPTRAVI [Suspect]
     Active Substance: SELEXIPAG
     Dosage: 200 ?G, BID
     Route: 048
     Dates: start: 20170719
  5. UPTRAVI [Suspect]
     Active Substance: SELEXIPAG
     Dosage: 1400 ?G, QD
     Route: 048
     Dates: start: 20171008
  6. UPTRAVI [Suspect]
     Active Substance: SELEXIPAG
     Dosage: 600 ?G, BID
     Route: 048
     Dates: start: 20171025
  7. UPTRAVI [Suspect]
     Active Substance: SELEXIPAG
     Dosage: 800 ?G, BID
     Route: 048
     Dates: start: 20180122
  8. VENTAVIS [Concomitant]
     Active Substance: ILOPROST
     Indication: PULMONARY ARTERIAL HYPERTENSION
     Dosage: UNK, BID
     Route: 055
  9. NORVASC [Concomitant]
     Active Substance: AMLODIPINE BESYLATE
  10. ELTROXIN [Concomitant]
     Active Substance: LEVOTHYROXINE
  11. METHOTREXATE. [Concomitant]
     Active Substance: METHOTREXATE
  12. UPTRAVI [Suspect]
     Active Substance: SELEXIPAG
     Dosage: 1400 ?G, QD
     Route: 048
  13. UPTRAVI [Suspect]
     Active Substance: SELEXIPAG
     Dosage: 400 ?G, BID
     Route: 048
     Dates: start: 20180522
  14. UPTRAVI [Suspect]
     Active Substance: SELEXIPAG
     Dosage: 800 ?G, BID
     Route: 048
     Dates: start: 20170924
  15. LIPITOR [Concomitant]
     Active Substance: ATORVASTATIN CALCIUM
  16. DILATAM [Concomitant]
     Active Substance: DILTIAZEM HYDROCHLORIDE

REACTIONS (13)
  - Myalgia [Recovering/Resolving]
  - Weight decreased [Unknown]
  - Catheter site infection [Recovering/Resolving]
  - Headache [Recovered/Resolved]
  - Neck pain [Recovered/Resolved]
  - Haemoglobin decreased [Unknown]
  - Pain in jaw [Recovered/Resolved]
  - Dyspnoea [Recovering/Resolving]
  - Decreased appetite [Not Recovered/Not Resolved]
  - Catheter management [Unknown]
  - Wound infection [Recovered/Resolved]
  - Purulence [Recovered/Resolved]
  - Rheumatic disorder [Unknown]

NARRATIVE: CASE EVENT DATE: 20170805
